FAERS Safety Report 7850123-X (Version None)
Quarter: 2011Q4

REPORT INFORMATION
  Report Type: 
  Country: None (occurrence: None)
  Receive Date: 20111026
  Receipt Date: 20111020
  Transmission Date: 20120403
  Serious: Yes (Death)
  Sender: FDA-Public Use
  Company Number: JP-ASTELLAS-2011JP007495

PATIENT
  Age: 76 Year
  Sex: Male

DRUGS (4)
  1. MEROPENEM [Concomitant]
     Route: 065
  2. CEFEPIME [Concomitant]
     Indication: BACTERIAL INFECTION
     Route: 065
  3. VANCOMYCIN HCL [Concomitant]
     Route: 065
  4. FUNGUARD [Suspect]
     Indication: CANDIDIASIS
     Dosage: UNK
     Route: 065

REACTIONS (2)
  - DRUG INEFFECTIVE [None]
  - CANDIDA SEPSIS [None]
